FAERS Safety Report 9744078 (Version 3)
Quarter: 2014Q1

REPORT INFORMATION
  Report Type: Spontaneous
  Country: JP (occurrence: JP)
  Receive Date: 20131210
  Receipt Date: 20140120
  Transmission Date: 20141002
  Serious: No
  Sender: FDA-Public Use
  Company Number: JP-GLAXOSMITHKLINE-B0950399A

PATIENT
  Age: 53 Year
  Sex: Male

DRUGS (5)
  1. LAMICTAL [Suspect]
     Indication: BIPOLAR DISORDER
     Dosage: 25MG PER DAY
     Route: 048
     Dates: start: 20131029, end: 20131109
  2. LAMICTAL [Suspect]
     Indication: BIPOLAR DISORDER
     Dosage: 50MG PER DAY
     Route: 048
     Dates: start: 20131110, end: 20131122
  3. CYMBALTA [Concomitant]
     Dosage: 60MG PER DAY
     Route: 048
  4. SULPIRIDE [Concomitant]
     Route: 048
  5. MYSLEE [Concomitant]
     Dosage: 5MG PER DAY
     Route: 048

REACTIONS (1)
  - Eczema [Recovered/Resolved]
